FAERS Safety Report 8482153-1 (Version None)
Quarter: 2012Q3

REPORT INFORMATION
  Report Type: 
  Country: None (occurrence: None)
  Receive Date: 20120702
  Receipt Date: 20120625
  Transmission Date: 20120928
  Serious: Yes (Hospitalization)
  Sender: FDA-Public Use
  Company Number: GR-B.I. PHARMACEUTICALS,INC./RIDGEFIELD-2012-EU-03315GB

PATIENT
  Age: 77 Year
  Sex: Male

DRUGS (3)
  1. UNSPECIFIED DRUG FOR DIABETES MELLITUS [Concomitant]
     Indication: DIABETES MELLITUS
  2. PRADAXA [Suspect]
     Indication: ATRIAL FIBRILLATION
     Dosage: 220 MG
     Route: 048
     Dates: start: 20111201, end: 20111201
  3. UNSPECEFIED DRUG IN COPD [Concomitant]
     Indication: CHRONIC OBSTRUCTIVE PULMONARY DISEASE

REACTIONS (6)
  - PLEURAL EFFUSION [None]
  - ROAD TRAFFIC ACCIDENT [None]
  - PNEUMOTHORAX [None]
  - PLEURAL HAEMORRHAGE [None]
  - DYSPNOEA [None]
  - PERICARDITIS [None]
